FAERS Safety Report 13043374 (Version 1)
Quarter: 2016Q4

REPORT INFORMATION
  Report Type: Spontaneous
  Country: US (occurrence: US)
  Receive Date: 20161220
  Receipt Date: 20161220
  Transmission Date: 20170207
  Serious: No
  Sender: FDA-Public Use
  Company Number: US-BAUSCH-BL-2016-020168

PATIENT
  Sex: Male

DRUGS (3)
  1. ACNEFREE CLEAR SKIN TREATMENTS 24 HOUR SEVERE ACNE CLEARING SYSTEM [Suspect]
     Active Substance: BENZOYL PEROXIDE
     Indication: ACNE
     Dosage: PER PRODUCT LABELS
     Route: 061
     Dates: start: 201608
  2. ZIANA [Suspect]
     Active Substance: CLINDAMYCIN PHOSPHATE\TRETINOIN
     Indication: ACNE
     Dosage: TO FACE EVRY NIGHT
     Route: 061
     Dates: start: 2016
  3. BENZOYL PEROXIDE CLEANSER [Concomitant]
     Active Substance: BENZOYL PEROXIDE
     Indication: ACNE
     Route: 061
     Dates: start: 2016

REACTIONS (3)
  - Expired product administered [Unknown]
  - Acne [Not Recovered/Not Resolved]
  - Drug effect incomplete [Unknown]

NARRATIVE: CASE EVENT DATE: 2016
